FAERS Safety Report 8089425-3 (Version None)
Quarter: 2012Q1

REPORT INFORMATION
  Report Type: 
  Country: None (occurrence: None)
  Receive Date: 20120128
  Receipt Date: 20110622
  Transmission Date: 20120608
  Serious: No
  Sender: FDA-Public Use
  Company Number: US-ABBOTT-11P-163-0834827-00

PATIENT
  Sex: Male

DRUGS (9)
  1. ASPIRIN [Concomitant]
     Indication: ANTICOAGULANT THERAPY
     Route: 048
  2. QUESTRAN [Concomitant]
     Indication: HYPERLIPIDAEMIA
     Dosage: UNKNOWN DOSE EVERY NIGHT
     Route: 048
  3. LISINOPRIL AND HYDROCHLOROTHIAZIDE [Concomitant]
     Indication: ATRIAL FIBRILLATION
     Route: 048
  4. XANAX [Concomitant]
     Indication: PANIC ATTACK
     Dosage: 1/2 - 1 TABLET IN THE MORNING
     Route: 048
     Dates: start: 20010101
  5. GABAPENTIN [Concomitant]
     Indication: NEUROPATHY PERIPHERAL
     Dosage: 300 MG - ONE EVERY MORNING AND AFTERNOON
     Route: 048
     Dates: start: 20100901
  6. HUMIRA [Suspect]
     Indication: PSORIASIS
     Dosage: DOSE INTERRUPTED
     Dates: start: 20110301, end: 20110509
  7. IBUPROFEN [Concomitant]
     Indication: PAIN
     Dosage: ONE OTC AS NEEDED
  8. NAPROXEN [Concomitant]
     Indication: PAIN
     Dosage: ONE AS NEEDED
  9. CARTIA XT [Concomitant]
     Indication: ATRIAL FIBRILLATION
     Dosage: 180 MG DAILY
     Dates: start: 20110201

REACTIONS (9)
  - ARTHRALGIA [None]
  - FOOT FRACTURE [None]
  - CERUMEN REMOVAL [None]
  - LIMB INJURY [None]
  - CONTUSION [None]
  - PAIN IN EXTREMITY [None]
  - ECCHYMOSIS [None]
  - CERUMEN IMPACTION [None]
  - BACK PAIN [None]
